FAERS Safety Report 19080691 (Version 2)
Quarter: 2021Q4

REPORT INFORMATION
  Report Type: Spontaneous
  Country: FR (occurrence: FR)
  Receive Date: 20210331
  Receipt Date: 20211005
  Transmission Date: 20220303
  Serious: Yes (Other)
  Sender: FDA-Public Use
  Company Number: FR-TEVA-2020-FR-1837016

PATIENT
  Age: 54 Year
  Sex: Female
  Weight: 61.7 kg

DRUGS (2)
  1. COPAXONE [Suspect]
     Active Substance: GLATIRAMER ACETATE
     Indication: Multiple sclerosis
     Dosage: SINCE 2 YEARS
     Route: 065
     Dates: start: 2018, end: 2021
  2. COPAXONE [Suspect]
     Active Substance: GLATIRAMER ACETATE
     Dosage: EVERY OTHER DAY
     Route: 058
     Dates: start: 20200301

REACTIONS (4)
  - Skin indentation [Unknown]
  - Injection site atrophy [Not Recovered/Not Resolved]
  - Injection site pain [Not Recovered/Not Resolved]
  - Skin discolouration [Unknown]

NARRATIVE: CASE EVENT DATE: 20200301
